FAERS Safety Report 16243052 (Version 1)
Quarter: 2019Q2

REPORT INFORMATION
  Report Type: Spontaneous
  Country: US (occurrence: US)
  Receive Date: 20190425
  Receipt Date: 20190425
  Transmission Date: 20190711
  Serious: Yes (Death)
  Sender: FDA-Public Use
  Company Number: None

PATIENT
  Age: 79 Year
  Sex: Female

DRUGS (11)
  1. FLUTICASONE. [Concomitant]
     Active Substance: FLUTICASONE
  2. WARFARIN [Concomitant]
     Active Substance: WARFARIN
  3. LORATADINE. [Concomitant]
     Active Substance: LORATADINE
  4. FERROUS SULF [Concomitant]
     Active Substance: FERROUS SULFATE
  5. DILTIAZEM CD [Concomitant]
     Active Substance: DILTIAZEM
  6. LOSARTAN-HCTZ [Concomitant]
     Active Substance: HYDROCHLOROTHIAZIDE\LOSARTAN
  7. TOBRAMYCIN. [Suspect]
     Active Substance: TOBRAMYCIN
     Indication: BRONCHIECTASIS
     Route: 055
  8. DIGOXIN. [Concomitant]
     Active Substance: DIGOXIN
  9. OMEPRAZOLE. [Concomitant]
     Active Substance: OMEPRAZOLE
  10. METFORMIN [Concomitant]
     Active Substance: METFORMIN HYDROCHLORIDE
  11. AZITHROMYCIN ANHYDROUS. [Concomitant]
     Active Substance: AZITHROMYCIN ANHYDROUS

REACTIONS (1)
  - Death [None]

NARRATIVE: CASE EVENT DATE: 20190418
